FAERS Safety Report 12379353 (Version 3)
Quarter: 2016Q3

REPORT INFORMATION
  Report Type: Spontaneous
  Country: US (occurrence: US)
  Receive Date: 20160517
  Receipt Date: 20160901
  Transmission Date: 20161109
  Serious: No
  Sender: FDA-Public Use
  Company Number: US-RELYPSA-RLY2016000408

PATIENT
  Age: 80 Year
  Sex: Male

DRUGS (20)
  1. CO Q 10                            /00517201/ [Concomitant]
  2. POTASSIUM [Concomitant]
     Active Substance: POTASSIUM
  3. ZYRTEC [Concomitant]
     Active Substance: CETIRIZINE HYDROCHLORIDE
  4. CEFDINIR. [Concomitant]
     Active Substance: CEFDINIR
  5. ALPRAZOLAM. [Concomitant]
     Active Substance: ALPRAZOLAM
  6. DYMISTA [Concomitant]
     Active Substance: AZELASTINE HYDROCHLORIDE\FLUTICASONE PROPIONATE
  7. ALLOPURINOL. [Concomitant]
     Active Substance: ALLOPURINOL
  8. ACEBUTOLOL HCL [Concomitant]
     Active Substance: ACEBUTOLOL
  9. MULTIVITAMINS [Concomitant]
     Active Substance: VITAMINS
  10. NEXIUM [Concomitant]
     Active Substance: ESOMEPRAZOLE MAGNESIUM
  11. VELTASSA [Suspect]
     Active Substance: PATIROMER
     Indication: HYPERKALAEMIA
     Dosage: 8.4 G, QD
     Route: 048
     Dates: start: 20160315
  12. LORTAB [Concomitant]
     Active Substance: ACETAMINOPHEN\HYDROCODONE BITARTRATE
  13. LOSARTAN. [Concomitant]
     Active Substance: LOSARTAN
  14. PRAVASTATIN SODIUM. [Concomitant]
     Active Substance: PRAVASTATIN SODIUM
  15. ASPIRIN. [Concomitant]
     Active Substance: ASPIRIN
  16. NITROGLYCERIN. [Concomitant]
     Active Substance: NITROGLYCERIN
  17. TYLENOL SINUS SEVERE CONGESTION [Concomitant]
  18. VESICARE [Concomitant]
     Active Substance: SOLIFENACIN SUCCINATE
  19. BIOTIN [Concomitant]
     Active Substance: BIOTIN
  20. KALEXATE [Concomitant]
     Active Substance: SODIUM POLYSTYRENE SULFONATE

REACTIONS (2)
  - Nausea [Unknown]
  - Gastroenteritis viral [Unknown]

NARRATIVE: CASE EVENT DATE: 201604
